FAERS Safety Report 21774077 (Version 1)
Quarter: 2022Q4

REPORT INFORMATION
  Report Type: Report from Study
  Country: GB (occurrence: GB)
  Receive Date: 20221223
  Receipt Date: 20221223
  Transmission Date: 20230113
  Serious: Yes (Other)
  Sender: FDA-Public Use
  Company Number: GB-KARYOPHARM THERAPEUTICS, INC.-2022KPT001644

PATIENT

DRUGS (3)
  1. SELINEXOR [Suspect]
     Active Substance: SELINEXOR
     Dosage: LOWEST DOSE
  2. SELINEXOR [Suspect]
     Active Substance: SELINEXOR
     Indication: Plasma cell myeloma
  3. SELINEXOR [Suspect]
     Active Substance: SELINEXOR

REACTIONS (3)
  - Plasma cell myeloma refractory [Unknown]
  - Blood sodium decreased [Unknown]
  - Nephropathy [Unknown]
